FAERS Safety Report 9263670 (Version 2)
Quarter: 2013Q2

REPORT INFORMATION
  Report Type: Report from Study
  Country: JP (occurrence: JP)
  Receive Date: 20130430
  Receipt Date: 20130515
  Transmission Date: 20140414
  Serious: Yes (Other)
  Sender: FDA-Public Use
  Company Number: JP-JNJFOC-20130415302

PATIENT
  Age: 52 Year
  Sex: Male
  Weight: 72 kg

DRUGS (9)
  1. TRAMCET [Suspect]
     Indication: PAIN
     Dosage: 3 PER DAY
     Route: 048
     Dates: start: 20120913
  2. NAUZELIN [Concomitant]
     Indication: PROPHYLAXIS
     Dosage: 1 PER DAY
     Route: 048
     Dates: start: 20120913
  3. SOLANAX [Concomitant]
     Indication: PSYCHIATRIC SYMPTOM
     Route: 048
  4. SULPIRIDE [Concomitant]
     Indication: PSYCHIATRIC SYMPTOM
     Route: 048
  5. SEDIEL [Concomitant]
     Indication: PSYCHIATRIC SYMPTOM
     Route: 048
  6. MINZAIN [Concomitant]
     Indication: PSYCHIATRIC SYMPTOM
     Route: 048
  7. FLUNITRAZEPAM [Concomitant]
     Indication: PSYCHIATRIC SYMPTOM
     Route: 048
  8. RESLIN [Concomitant]
     Indication: PSYCHIATRIC SYMPTOM
     Route: 048
  9. SENIRAN [Concomitant]
     Indication: PSYCHIATRIC SYMPTOM
     Route: 048

REACTIONS (3)
  - Muscular weakness [Recovering/Resolving]
  - Bedridden [Unknown]
  - Gait disturbance [Unknown]
